FAERS Safety Report 14642070 (Version 3)
Quarter: 2018Q2

REPORT INFORMATION
  Report Type: Spontaneous
  Country: US (occurrence: US)
  Receive Date: 20180315
  Receipt Date: 20180625
  Transmission Date: 20180711
  Serious: Yes (Hospitalization, Other)
  Sender: FDA-Public Use
  Company Number: US-OTSUKA-2018_006235

PATIENT
  Age: 63 Year
  Sex: Male
  Weight: 81.6 kg

DRUGS (1)
  1. DECITABINE. [Suspect]
     Active Substance: DECITABINE
     Indication: CHRONIC MYELOID LEUKAEMIA
     Dosage: 20 MG/M2 X 5 DAYS IN EVERY 28 DAYS
     Route: 042
     Dates: start: 20170626, end: 20180430

REACTIONS (2)
  - Sudden hearing loss [Unknown]
  - Febrile neutropenia [Unknown]

NARRATIVE: CASE EVENT DATE: 20170710
